FAERS Safety Report 13449237 (Version 1)
Quarter: 2017Q2

REPORT INFORMATION
  Report Type: Report from Study
  Country: US (occurrence: US)
  Receive Date: 20170417
  Receipt Date: 20170417
  Transmission Date: 20170830
  Serious: Yes (Other)
  Sender: FDA-Public Use
  Company Number: US-PFIZER INC-2017160017

PATIENT
  Age: 34 Year
  Sex: Male

DRUGS (13)
  1. REXULTI [Suspect]
     Active Substance: BREXPIPRAZOLE
     Indication: SCHIZOPHRENIA
     Dosage: UNK
  2. FLUPENTIXOL [Suspect]
     Active Substance: FLUPENTIXOL
     Indication: SCHIZOPHRENIA
     Dosage: UNK
  3. FLUPHENAZINE DECANOATE. [Suspect]
     Active Substance: FLUPHENAZINE DECANOATE
     Indication: SCHIZOPHRENIA
     Dosage: UNK
  4. ABILIFY MAINTENA [Suspect]
     Active Substance: ARIPIPRAZOLE
     Indication: SCHIZOPHRENIA
     Dosage: UNK
  5. HALOPERIDOL DECANOATE. [Suspect]
     Active Substance: HALOPERIDOL DECANOATE
     Indication: SCHIZOPHRENIA
     Dosage: UNK
  6. FLUPENTIXOL DECANOATE [Suspect]
     Active Substance: FLUPENTIXOL DECANOATE
     Indication: SCHIZOPHRENIA
     Dosage: UNK
  7. GEODON [Suspect]
     Active Substance: ZIPRASIDONE HYDROCHLORIDE\ZIPRASIDONE MESYLATE
     Indication: SCHIZOPHRENIA
     Dosage: UNK
  8. RISPERDAL CONSTA [Suspect]
     Active Substance: RISPERIDONE
     Indication: SCHIZOPHRENIA
     Dosage: UNK
  9. CLOZAPINE. [Suspect]
     Active Substance: CLOZAPINE
     Indication: SCHIZOPHRENIA
     Dosage: UNK
  10. FANAPT [Suspect]
     Active Substance: ILOPERIDONE
     Indication: SCHIZOPHRENIA
     Dosage: UNK
  11. LEPONEX [Suspect]
     Active Substance: CLOZAPINE
     Indication: SCHIZOPHRENIA
     Dosage: UNK
  12. HALDOL [Suspect]
     Active Substance: HALOPERIDOL
     Indication: SCHIZOPHRENIA
     Dosage: UNK
  13. INVEGA [Suspect]
     Active Substance: PALIPERIDONE
     Indication: SCHIZOPHRENIA
     Dosage: UNK

REACTIONS (12)
  - Parkinsonism [Unknown]
  - Hostility [Unknown]
  - Drug ineffective [Unknown]
  - Anosognosia [Unknown]
  - Emotional poverty [Unknown]
  - Blood prolactin abnormal [Unknown]
  - Abnormal behaviour [Unknown]
  - Social avoidant behaviour [Unknown]
  - Sexual dysfunction [Unknown]
  - Aggression [Unknown]
  - Cognitive disorder [Unknown]
  - Akathisia [Unknown]
